FAERS Safety Report 4925076-4 (Version None)
Quarter: 2006Q1

REPORT INFORMATION
  Report Type: 
  Country: None (occurrence: None)
  Receive Date: 20060222
  Receipt Date: 20060209
  Transmission Date: 20060701
  Serious: Yes (Disabling, Other)
  Sender: FDA-Public Use
  Company Number: 2006020357

PATIENT
  Sex: Female
  Weight: 62.5964 kg

DRUGS (11)
  1. LIPITOR [Suspect]
     Indication: BLOOD CHOLESTEROL INCREASED
     Dosage: 20 MG (20 MG, 1 IN 1 D), ORAL
     Route: 048
     Dates: end: 20051225
  2. LIPITOR [Suspect]
     Indication: BLOOD TRIGLYCERIDES
     Dosage: 20 MG (20 MG, 1 IN 1 D), ORAL
     Route: 048
     Dates: end: 20051225
  3. ZOCOR [Suspect]
     Indication: BLOOD CHOLESTEROL INCREASED
  4. ZOCOR [Suspect]
     Indication: BLOOD TRIGLYCERIDES
  5. LOVASTATIN [Suspect]
     Indication: BLOOD CHOLESTEROL INCREASED
  6. LOVASTATIN [Suspect]
     Indication: BLOOD TRIGLYCERIDES
  7. DILTIAZEM [Concomitant]
  8. LEVOTHYROXINE SODIUM [Concomitant]
  9. FUROSEMIDE [Concomitant]
  10. POTASSIUM (POTASSIUM) [Concomitant]
  11. ZYRTEC [Concomitant]

REACTIONS (6)
  - ACOUSTIC NEUROMA [None]
  - ARTHRALGIA [None]
  - ASTHENIA [None]
  - BLOOD POTASSIUM DECREASED [None]
  - DYSSTASIA [None]
  - MYALGIA [None]
